FAERS Safety Report 9333781 (Version 1)
Quarter: 2013Q2

REPORT INFORMATION
  Report Type: Spontaneous
  Country: IT (occurrence: IT)
  Receive Date: 20130606
  Receipt Date: 20130606
  Transmission Date: 20140414
  Serious: Yes (Hospitalization)
  Sender: FDA-Public Use
  Company Number: IT-TEVA-409157ISR

PATIENT
  Age: 25 Year
  Sex: Female

DRUGS (2)
  1. LANSOPRAZOLE [Suspect]
     Dosage: 90 MILLIGRAM DAILY;
     Route: 048
     Dates: start: 20130511, end: 20130511
  2. IBUPROFENE [Suspect]
     Dosage: 6000 MILLIGRAM DAILY;
     Route: 048
     Dates: start: 20130511, end: 20130511

REACTIONS (1)
  - Toxicity to various agents [Recovering/Resolving]
